FAERS Safety Report 8962019 (Version 1)
Quarter: 2012Q4

REPORT INFORMATION
  Report Type: 
  Country: US (occurrence: US)
  Receive Date: 20121213
  Receipt Date: 20121213
  Transmission Date: 20130627
  Serious: No
  Sender: FDA-Public Use
  Company Number: US-BIOGENIDEC-2012BI059130

PATIENT
  Age: 41 Year
  Sex: Female

DRUGS (1)
  1. TYSABRI [Suspect]
     Indication: MULTIPLE SCLEROSIS
     Route: 042
     Dates: start: 20110419

REACTIONS (5)
  - Multiple sclerosis relapse [Recovered/Resolved]
  - Speech disorder [Recovered/Resolved]
  - Dysphemia [Recovered/Resolved]
  - Coordination abnormal [Recovered/Resolved]
  - Peroneal nerve palsy [Recovered/Resolved]
